FAERS Safety Report 17070385 (Version 1)
Quarter: 2019Q4

REPORT INFORMATION
  Report Type: Spontaneous
  Country: US (occurrence: US)
  Receive Date: 20191122
  Receipt Date: 20191122
  Transmission Date: 20200122
  Serious: No
  Sender: FDA-Public Use
  Company Number: None

PATIENT
  Age: 55 Year
  Sex: Female
  Weight: 81 kg

DRUGS (2)
  1. MIDAZOLAM 5MG/5ML [Concomitant]
     Dates: start: 20191122, end: 20191122
  2. MIDAZOLAM [Suspect]
     Active Substance: MIDAZOLAM HYDROCHLORIDE

REACTIONS (2)
  - Drug ineffective [None]
  - Product packaging quantity issue [None]

NARRATIVE: CASE EVENT DATE: 20191122
